FAERS Safety Report 18948884 (Version 1)
Quarter: 2021Q1

REPORT INFORMATION
  Report Type: Spontaneous
  Country: FR (occurrence: FR)
  Receive Date: 20210227
  Receipt Date: 20210227
  Transmission Date: 20210420
  Serious: Yes (Hospitalization)
  Sender: FDA-Public Use
  Company Number: NVSC2021FR038071

PATIENT
  Age: 1 Day
  Sex: Female

DRUGS (4)
  1. OMEPRAZOLE. [Suspect]
     Active Substance: OMEPRAZOLE
     Indication: PROPHYLAXIS
     Dosage: 80 MG
     Route: 064
     Dates: end: 20210202
  2. CREON [Suspect]
     Active Substance: PANCRELIPASE AMYLASE\PANCRELIPASE LIPASE\PANCRELIPASE PROTEASE
     Indication: PANCREATIC FAILURE
     Dosage: UNK (11 ? 16G?L PAR JOUR) (25 000 U)
     Route: 064
     Dates: end: 20210202
  3. CEFTAZIDIME. [Suspect]
     Active Substance: CEFTAZIDIME
     Indication: INFECTION
     Dosage: UNK
     Route: 064
     Dates: start: 20200119, end: 20210127
  4. AZACTAM [Suspect]
     Active Substance: AZTREONAM
     Indication: PROPHYLAXIS
     Dosage: 6 G
     Route: 064
     Dates: start: 20210127, end: 20210202

REACTIONS (1)
  - Pulmonary haemorrhage [Not Recovered/Not Resolved]

NARRATIVE: CASE EVENT DATE: 20210202
